FAERS Safety Report 14351137 (Version 2)
Quarter: 2018Q1

REPORT INFORMATION
  Report Type: Spontaneous
  Country: RU (occurrence: RU)
  Receive Date: 20180104
  Receipt Date: 20180117
  Transmission Date: 20180509
  Serious: Yes (Other)
  Sender: FDA-Public Use
  Company Number: RU-PFIZER INC-2017550725

PATIENT
  Age: 31 Year
  Sex: Female
  Weight: 101.4 kg

DRUGS (3)
  1. PREPIDIL [Suspect]
     Active Substance: DINOPROSTONE
     Indication: LABOUR STIMULATION
     Dosage: 3 G, UNK (0,0005/3,0)
     Route: 019
     Dates: start: 20160606, end: 20160606
  2. VITRUM PRENATAL [Concomitant]
     Indication: PRENATAL CARE
     Dosage: 1 DF, DAILY
     Dates: start: 20160401, end: 20160605
  3. RINGER^S SOLUTION /03112001/ [Concomitant]
     Indication: FOETAL DISTRESS SYNDROME
     Dosage: 200 ML, UNK
     Route: 041
     Dates: start: 20160602, end: 20160605

REACTIONS (18)
  - Fungal infection [Unknown]
  - Obstructive pancreatitis [Unknown]
  - Cholecystitis chronic [Unknown]
  - Haemorrhagic anaemia [Unknown]
  - Ileus paralytic [Unknown]
  - Asthenia [Unknown]
  - Abnormal labour [Recovered/Resolved]
  - Condition aggravated [Unknown]
  - Pneumonia [Unknown]
  - Hydrothorax [Unknown]
  - Labour pain [Recovered/Resolved]
  - Amniotic cavity infection [Recovered/Resolved]
  - Peritonitis [Unknown]
  - Atonic urinary bladder [Unknown]
  - Dyspnoea [Unknown]
  - Tachycardia [Unknown]
  - Postpartum sepsis [Unknown]
  - Vaginal haemorrhage [Recovered/Resolved]

NARRATIVE: CASE EVENT DATE: 20160606
